FAERS Safety Report 4848258-9 (Version None)
Quarter: 2005Q4

REPORT INFORMATION
  Report Type: 
  Country: None (occurrence: None)
  Receive Date: 20051208
  Receipt Date: 20051129
  Transmission Date: 20060501
  Serious: Yes (Hospitalization)
  Sender: FDA-Public Use
  Company Number: 2005SE06910

PATIENT
  Age: 59 Year
  Sex: Male

DRUGS (3)
  1. TENORETIC 100 [Suspect]
     Indication: MYOCARDIAL ISCHAEMIA
     Dosage: 100 + 25 MG DAILY
     Route: 048
     Dates: start: 20050601, end: 20051101
  2. ANTABUS DISPERGETTES [Suspect]
     Indication: ALCOHOLISM
     Route: 048
     Dates: start: 20050601, end: 20051101
  3. ASPIRIN [Concomitant]
     Route: 048
     Dates: start: 20050601, end: 20051101

REACTIONS (3)
  - ATRIAL FIBRILLATION [None]
  - BLOOD POTASSIUM DECREASED [None]
  - PSYCHOMOTOR HYPERACTIVITY [None]
